FAERS Safety Report 6250002-8 (Version None)
Quarter: 2009Q2

REPORT INFORMATION
  Report Type: 
  Country: None (occurrence: None)
  Receive Date: 20090625
  Receipt Date: 20090612
  Transmission Date: 20091009
  Serious: Yes (Hospitalization)
  Sender: FDA-Public Use
  Company Number: 8047908

PATIENT
  Age: 31 Year
  Sex: Male

DRUGS (6)
  1. PREDNISOLONE [Suspect]
     Indication: WEGENER'S GRANULOMATOSIS
     Dosage: 60 MG /D PO
     Route: 048
  2. PREDNISOLONE [Suspect]
     Indication: WEGENER'S GRANULOMATOSIS
     Dosage: 40 MG /D PO
     Route: 048
  3. CYCLOPHOSPHAMIDE [Suspect]
     Indication: WEGENER'S GRANULOMATOSIS
     Dosage: 100 MG /D PO
     Route: 048
  4. IBUPROFEN [Concomitant]
  5. METHYLPREDNISOLONE [Concomitant]
  6. COTRIM [Concomitant]

REACTIONS (9)
  - BLOOD CREATININE INCREASED [None]
  - DEEP VEIN THROMBOSIS [None]
  - HAEMODIALYSIS [None]
  - HAEMOGLOBIN DECREASED [None]
  - HAEMOPTYSIS [None]
  - INTERNATIONAL NORMALISED RATIO DECREASED [None]
  - PLATELET COUNT DECREASED [None]
  - PULMONARY EMBOLISM [None]
  - PULMONARY HAEMORRHAGE [None]
